FAERS Safety Report 21212702 (Version 1)
Quarter: 2022Q3

REPORT INFORMATION
  Report Type: Spontaneous
  Country: US (occurrence: None)
  Receive Date: 20220812
  Receipt Date: 20220812
  Transmission Date: 20221026
  Serious: Yes (Life-Threatening, Hospitalization)
  Sender: FDA-Public Use
  Company Number: None

PATIENT
  Age: 48 Year
  Sex: Female

DRUGS (3)
  1. ALLOPURINOL [Suspect]
     Active Substance: ALLOPURINOL
     Indication: Renal lithiasis prophylaxis
     Dosage: FREQUENCY : DAILY;?
     Route: 048
     Dates: start: 20220722, end: 20220806
  2. METFORMIN [Concomitant]
     Active Substance: METFORMIN HYDROCHLORIDE
  3. VALSARTAN [Concomitant]
     Active Substance: VALSARTAN

REACTIONS (3)
  - Nephrolithiasis [None]
  - Drug reaction with eosinophilia and systemic symptoms [None]
  - Pruritus [None]

NARRATIVE: CASE EVENT DATE: 20220806
